FAERS Safety Report 5744843-0 (Version None)
Quarter: 2008Q2

REPORT INFORMATION
  Report Type: 
  Country: None (occurrence: None)
  Receive Date: 20080520
  Receipt Date: 20080514
  Transmission Date: 20081010
  Serious: Yes (Other)
  Sender: FDA-Public Use
  Company Number: CA-PFIZER INC-2008042309

PATIENT
  Age: 66 Year
  Sex: Female

DRUGS (9)
  1. CHANTIX [Suspect]
     Route: 048
  2. PANTOPRAZOLE SODIUM [Concomitant]
  3. PAROXETINE HCL [Concomitant]
  4. VALSARTAN [Concomitant]
  5. DIAZEPAM [Concomitant]
  6. CALCIUM [Concomitant]
  7. ACETAMINOPHEN [Concomitant]
  8. IBUPROFEN [Concomitant]
  9. VITAMIN E [Concomitant]

REACTIONS (1)
  - INTRAOCULAR PRESSURE INCREASED [None]
